FAERS Safety Report 15625104 (Version 8)
Quarter: 2022Q3

REPORT INFORMATION
  Report Type: Spontaneous
  Country: DE (occurrence: DE)
  Receive Date: 20181116
  Receipt Date: 20220722
  Transmission Date: 20221027
  Serious: Yes (Death, Life-Threatening, Hospitalization, Other)
  Sender: FDA-Public Use
  Company Number: PHHY2018DE154592

PATIENT
  Age: 63 Year
  Sex: Female
  Weight: 100 kg

DRUGS (17)
  1. VALSARTAN [Suspect]
     Active Substance: VALSARTAN
     Indication: Hypertension
     Dosage: 160 MG, QD
     Route: 048
     Dates: start: 2012, end: 20180601
  2. VALSARTAN [Suspect]
     Active Substance: VALSARTAN
     Dosage: 160 MG, QD
     Route: 048
     Dates: start: 20130513, end: 20180917
  3. VALSARTAN [Concomitant]
     Active Substance: VALSARTAN
     Indication: Hypertension
     Dosage: 160 MG, QD (ONCE DAILY IN THE MORNING) (1-0-0)
     Route: 065
     Dates: start: 20180917
  4. CANDESARTAN [Concomitant]
     Active Substance: CANDESARTAN
     Indication: Product used for unknown indication
     Dosage: UNK
     Route: 065
  5. HARVONI [Concomitant]
     Active Substance: LEDIPASVIR\SOFOSBUVIR
     Indication: Chronic hepatitis C
     Dosage: UNK (FOR EIGHT WEEKS)
     Route: 065
     Dates: start: 201706, end: 201708
  6. HARVONI [Concomitant]
     Active Substance: LEDIPASVIR\SOFOSBUVIR
     Dosage: UNK
     Route: 065
     Dates: start: 201904
  7. GABAPENTIN [Concomitant]
     Active Substance: GABAPENTIN
     Indication: Product used for unknown indication
     Dosage: 400 MG, TID, 3X400 MG
     Route: 065
  8. HYDROMORPHONE [Concomitant]
     Active Substance: HYDROMORPHONE
     Indication: Product used for unknown indication
     Dosage: UNK
     Route: 042
     Dates: start: 202009
  9. PANTOZOL [Concomitant]
     Active Substance: PANTOPRAZOLE SODIUM
     Indication: Product used for unknown indication
     Dosage: 40 MG, QD, 1X 40 MG, ONCE DAILY IN THE MORNING (1-0-0)
     Route: 065
  10. DEXAMETHASONE [Concomitant]
     Active Substance: DEXAMETHASONE
     Indication: Product used for unknown indication
     Dosage: 8 MG, UNK
     Route: 042
  11. DEXAMETHASONE [Concomitant]
     Active Substance: DEXAMETHASONE
     Dosage: 4 MG, UNK (ON DAY 4 AND 5 OF CYCLE)
     Route: 065
  12. EMEND [Concomitant]
     Active Substance: APREPITANT
     Indication: Product used for unknown indication
     Dosage: 125 MG, UNK
     Route: 048
  13. EMEND [Concomitant]
     Active Substance: APREPITANT
     Dosage: 80 MG, UNK (ON DAY 4 AND 5 OF CYCLE)
     Route: 048
  14. GRANISETRON HYDROCHLORIDE [Concomitant]
     Active Substance: GRANISETRON HYDROCHLORIDE
     Indication: Product used for unknown indication
     Dosage: 1 MG, UNK
     Route: 042
  15. MAGNESIUM SULFATE [Concomitant]
     Active Substance: MAGNESIUM SULFATE
     Indication: Product used for unknown indication
     Dosage: 1 G, UNK
     Route: 041
  16. ALOXI [Concomitant]
     Active Substance: PALONOSETRON HYDROCHLORIDE
     Indication: Product used for unknown indication
     Dosage: 250 UG, UNK
     Route: 065
  17. METOCLOPRAMIDE [Concomitant]
     Active Substance: METOCLOPRAMIDE
     Indication: Product used for unknown indication
     Dosage: 20 GTT, TID
     Route: 065

REACTIONS (40)
  - Hepatic neuroendocrine tumour [Fatal]
  - Malignant neoplasm progression [Fatal]
  - Metastatic lymphoma [Fatal]
  - Dermoid cyst [Fatal]
  - Dyspnoea [Fatal]
  - Localised oedema [Fatal]
  - Bone lesion [Fatal]
  - Wheezing [Fatal]
  - Bartholin^s gland disorder [Recovered/Resolved with Sequelae]
  - Neuroendocrine carcinoma [Recovered/Resolved with Sequelae]
  - Pain [Unknown]
  - Vulvovaginal pain [Unknown]
  - Vomiting [Recovering/Resolving]
  - Asthenia [Recovering/Resolving]
  - Decreased appetite [Recovering/Resolving]
  - Fatigue [Recovering/Resolving]
  - Insomnia [Recovering/Resolving]
  - Nausea [Recovering/Resolving]
  - Lung neoplasm malignant [Unknown]
  - Neuroendocrine carcinoma [Unknown]
  - Colitis ulcerative [Unknown]
  - Diarrhoea haemorrhagic [Unknown]
  - Metastases to liver [Unknown]
  - Venous angioma of brain [Unknown]
  - Mucous stools [Unknown]
  - Rectal haemorrhage [Unknown]
  - Hepatitis B [Recovered/Resolved]
  - Electrocardiogram QT prolonged [Unknown]
  - Cardiac ventricular disorder [Unknown]
  - Teratoma [Unknown]
  - General physical health deterioration [Unknown]
  - Humerus fracture [Unknown]
  - Blood pressure fluctuation [Unknown]
  - Urine output decreased [Unknown]
  - Osteoarthritis [Unknown]
  - Cerebral microangiopathy [Unknown]
  - Vertigo positional [Unknown]
  - Herpes simplex [Unknown]
  - Candida infection [Unknown]
  - Emotional distress [Unknown]

NARRATIVE: CASE EVENT DATE: 20180115
